FAERS Safety Report 7383264-4 (Version None)
Quarter: 2011Q1

REPORT INFORMATION
  Report Type: 
  Country: None (occurrence: None)
  Receive Date: 20110330
  Receipt Date: 20110325
  Transmission Date: 20110831
  Serious: Yes (Death, Hospitalization)
  Sender: FDA-Public Use
  Company Number: PHFR2011GB00893

PATIENT
  Sex: Male

DRUGS (1)
  1. CLOZARIL [Suspect]
     Indication: SCHIZOPHRENIA
     Dosage: UNK
     Route: 048
     Dates: start: 19920324

REACTIONS (4)
  - INFECTION [None]
  - MALIGNANT NEOPLASM OF SPINAL CORD [None]
  - GASTRIC CANCER [None]
  - TERMINAL STATE [None]
